FAERS Safety Report 25531328 (Version 5)
Quarter: 2025Q4

REPORT INFORMATION
  Report Type: Report from Study
  Country: CA (occurrence: CA)
  Receive Date: 20250708
  Receipt Date: 20251126
  Transmission Date: 20260117
  Serious: Yes (Other)
  Sender: BAUSCH AND LOMB
  Company Number: CA-BAUSCH-BH-2025-014415

PATIENT
  Age: 63 Year
  Sex: Female

DRUGS (5)
  1. SILIQ [Suspect]
     Active Substance: BRODALUMAB
     Indication: Psoriasis
     Dosage: 210MG/1.5ML WEEKLY (WEEK 0-2)
     Route: 058
     Dates: start: 20210519, end: 20210602
  2. SILIQ [Suspect]
     Active Substance: BRODALUMAB
     Dosage: 210MG/1.5ML EVERY 2 WEEKS
     Route: 058
     Dates: start: 202106, end: 202507
  3. SILIQ [Suspect]
     Active Substance: BRODALUMAB
     Dosage: CONTINUE RECEIVING SILIQ INJECTIONS EVERY TWO WEEKS FROM 06-NOV-2025
     Route: 058
     Dates: start: 20251106
  4. PROMETRIUM [Concomitant]
     Active Substance: PROGESTERONE
     Indication: Product used for unknown indication
  5. ESTROGENS [Concomitant]
     Active Substance: ESTROGENS
     Indication: Product used for unknown indication

REACTIONS (4)
  - Breast cancer [Recovered/Resolved]
  - Psoriasis [Recovered/Resolved]
  - Disease recurrence [Recovered/Resolved]
  - Intentional product use issue [Unknown]

NARRATIVE: CASE EVENT DATE: 20250414
